FAERS Safety Report 10201057 (Version 2)
Quarter: 2014Q2

REPORT INFORMATION
  Report Type: Other
  Country: US (occurrence: US)
  Receive Date: 20140528
  Receipt Date: 20140602
  Transmission Date: 20141212
  Serious: Yes (Death, Hospitalization)
  Sender: FDA-Public Use
  Company Number: US-SHIRE-US201402499

PATIENT
  Age: 72 Year
  Sex: Male
  Weight: 52.25 kg

DRUGS (1)
  1. FOSRENOL [Suspect]
     Indication: PRODUCT USED FOR UNKNOWN INDICATION
     Dosage: 1500 MG, OTHER(WITH MEALS)
     Route: 048
     Dates: start: 20121113

REACTIONS (2)
  - Death [Fatal]
  - Hospitalisation [Unknown]
